FAERS Safety Report 19446705 (Version 1)
Quarter: 2021Q2

REPORT INFORMATION
  Report Type: Spontaneous
  Country: US (occurrence: US)
  Receive Date: 20210620
  Receipt Date: 20210620
  Transmission Date: 20210717
  Serious: Yes (Hospitalization, Disabling, Other)
  Sender: FDA-Public Use
  Company Number: None

PATIENT
  Age: 46 Year
  Sex: Female
  Weight: 56.25 kg

DRUGS (8)
  1. CLONAZEPAM. [Suspect]
     Active Substance: CLONAZEPAM
     Indication: ANXIETY DISORDER
     Dosage: ?          QUANTITY:1 TABLET(S);?
     Route: 048
  2. TRAZODONE [Concomitant]
     Active Substance: TRAZODONE HYDROCHLORIDE
  3. RELORA [Concomitant]
  4. NAC [Concomitant]
  5. KLONOPIN [Concomitant]
     Active Substance: CLONAZEPAM
  6. NEURONTIN [Concomitant]
     Active Substance: GABAPENTIN
  7. NAPROXEN. [Concomitant]
     Active Substance: NAPROXEN
  8. CBD [Concomitant]
     Active Substance: CANNABIDIOL

REACTIONS (4)
  - Impaired work ability [None]
  - Seizure [None]
  - Legal problem [None]
  - Cognitive disorder [None]

NARRATIVE: CASE EVENT DATE: 20210401
